FAERS Safety Report 6453314-8 (Version None)
Quarter: 2009Q4

REPORT INFORMATION
  Report Type: 
  Country: None (occurrence: None)
  Receive Date: 20091124
  Receipt Date: 20091117
  Transmission Date: 20100525
  Serious: Yes (Hospitalization, Other)
  Sender: FDA-Public Use
  Company Number: US-AMGEN-QUU372251

PATIENT
  Sex: Female

DRUGS (24)
  1. ENBREL [Suspect]
     Indication: PSORIASIS
     Route: 058
  2. ENBREL [Suspect]
     Indication: PSORIATIC ARTHROPATHY
  3. ZETIA [Concomitant]
  4. AVAPRO [Concomitant]
  5. CRESTOR [Concomitant]
  6. TRICOR [Concomitant]
  7. ADVAIR DISKUS 100/50 [Concomitant]
  8. ALBUTEROL [Concomitant]
  9. FLONASE [Concomitant]
  10. ZYRTEC [Concomitant]
  11. GLYBURIDE [Concomitant]
  12. JANUVIA [Concomitant]
  13. METFORMIN [Concomitant]
  14. LEVOXYL [Concomitant]
  15. ACTOS [Concomitant]
  16. TRAZODONE HCL [Concomitant]
  17. PROZAC [Concomitant]
  18. FLEXERIL [Concomitant]
  19. NEXIUM [Concomitant]
  20. LASIX [Concomitant]
  21. ASPIRIN [Concomitant]
  22. POTASSIUM CHLORIDE [Concomitant]
  23. UNSPECIFIED VITAMINS [Concomitant]
  24. ACETAMINOPHEN, BUTALBITAL AND CAFFEINE [Concomitant]

REACTIONS (7)
  - ARTHRITIS INFECTIVE [None]
  - DERMATITIS ALLERGIC [None]
  - HYPERSENSITIVITY [None]
  - OSTEOARTHRITIS [None]
  - PSORIASIS [None]
  - RASH PRURITIC [None]
  - STAPHYLOCOCCAL INFECTION [None]
